FAERS Safety Report 6812034-8 (Version None)
Quarter: 2010Q3

REPORT INFORMATION
  Report Type: 
  Country: None (occurrence: None)
  Receive Date: 20100701
  Receipt Date: 20100628
  Transmission Date: 20110219
  Serious: Yes (Other)
  Sender: FDA-Public Use
  Company Number: JP-BAYER-200911089BYL

PATIENT
  Age: 79 Year
  Sex: Male
  Weight: 69 kg

DRUGS (11)
  1. NEXAVAR [Suspect]
     Indication: RENAL CELL CARCINOMA
     Dosage: TOTAL DAILY DOSE: 800 MG  UNIT DOSE: 200 MG
     Route: 048
     Dates: start: 20090128, end: 20090303
  2. NEXAVAR [Suspect]
     Dosage: UNIT DOSE: 200 MG
     Route: 048
     Dates: start: 20090423, end: 20090824
  3. NEXAVAR [Suspect]
     Dosage: UNIT DOSE: 200 MG
     Route: 048
     Dates: start: 20091007, end: 20091020
  4. NEXAVAR [Suspect]
     Dosage: UNIT DOSE: 200 MG
     Route: 048
     Dates: start: 20090402, end: 20090409
  5. NEXAVAR [Suspect]
     Dosage: UNIT DOSE: 200 MG
     Route: 048
     Dates: start: 20090825, end: 20091006
  6. HYPEN [Concomitant]
     Route: 048
     Dates: start: 20090204, end: 20090728
  7. ZOMETA [Concomitant]
     Route: 041
     Dates: start: 20090209, end: 20090209
  8. ZOMETA [Concomitant]
     Route: 041
     Dates: start: 20090303, end: 20090402
  9. ZOMETA [Concomitant]
     Route: 041
     Dates: start: 20090507, end: 20090728
  10. ZOMETA [Concomitant]
     Route: 041
     Dates: start: 20090825, end: 20090918
  11. LOXIPAIN [Concomitant]
     Route: 048
     Dates: start: 20090728, end: 20091007

REACTIONS (5)
  - DYSPHONIA [None]
  - HEPATIC FUNCTION ABNORMAL [None]
  - HYPERTENSION [None]
  - INTERVERTEBRAL DISC PROTRUSION [None]
  - PALMAR-PLANTAR ERYTHRODYSAESTHESIA SYNDROME [None]
